FAERS Safety Report 9651895 (Version 1)
Quarter: 2013Q4

REPORT INFORMATION
  Report Type: Spontaneous
  Country: US (occurrence: US)
  Receive Date: 20131029
  Receipt Date: 20131029
  Transmission Date: 20140711
  Serious: No
  Sender: FDA-Public Use
  Company Number: US-ENDO PHARMACEUTICALS INC.-LACT20130001

PATIENT
  Age: 76 Year
  Sex: Female
  Weight: 64.01 kg

DRUGS (1)
  1. LACTULOSE ORAL SOLUTION [Suspect]
     Indication: CONSTIPATION
     Dosage: 10GM/15ML
     Route: 048
     Dates: start: 201212

REACTIONS (1)
  - Drug ineffective [Not Recovered/Not Resolved]
